FAERS Safety Report 4411736-0 (Version None)
Quarter: 2004Q3

REPORT INFORMATION
  Report Type: 
  Country: None (occurrence: None)
  Receive Date: 20040730
  Receipt Date: 20040720
  Transmission Date: 20050211
  Serious: Yes (Hospitalization)
  Sender: FDA-Public Use
  Company Number: FR-AMGEN-UK083925

PATIENT
  Sex: Male

DRUGS (4)
  1. ARANESP [Suspect]
     Indication: MYELODYSPLASTIC SYNDROME
     Route: 058
     Dates: start: 20040512, end: 20040602
  2. COZAAR [Concomitant]
     Route: 048
     Dates: start: 20040610
  3. VOLTAREN [Concomitant]
     Route: 048
     Dates: start: 20040608
  4. CORTANCYL [Concomitant]

REACTIONS (4)
  - ANAEMIA [None]
  - HYPERKALAEMIA [None]
  - METABOLIC ACIDOSIS [None]
  - RENAL FAILURE ACUTE [None]
